FAERS Safety Report 8575085-1 (Version None)
Quarter: 2012Q3

REPORT INFORMATION
  Report Type: 
  Country: None (occurrence: None)
  Receive Date: 20120807
  Receipt Date: 20120723
  Transmission Date: 20120928
  Serious: No
  Sender: FDA-Public Use
  Company Number: US-009507513-1207USA009234

PATIENT

DRUGS (6)
  1. ENJUVIA [Concomitant]
  2. PEGASYS [Suspect]
  3. VALACYCLOVIR HYDROCHLORIDE [Concomitant]
  4. SLEEP AID 25MG CAPLET [COMPOSITION UNSPECIFIED] [Concomitant]
  5. RIBAVIRIN [Suspect]
  6. VICTRELIS [Suspect]
     Indication: HEPATITIS C
     Dosage: 800 MG, EVERY 7- 9 HOURS WITH FOOD
     Route: 048
     Dates: start: 20120626

REACTIONS (1)
  - ANAEMIA [None]
